FAERS Safety Report 21121613 (Version 1)
Quarter: 2022Q3

REPORT INFORMATION
  Report Type: Report from Study
  Country: BR (occurrence: BR)
  Receive Date: 20220722
  Receipt Date: 20220722
  Transmission Date: 20221027
  Serious: Yes (Other)
  Sender: FDA-Public Use
  Company Number: BR-JNJFOC-20190506748

PATIENT
  Age: 36 Year
  Sex: Female
  Weight: 56 kg

DRUGS (7)
  1. INFLIXIMAB [Suspect]
     Active Substance: INFLIXIMAB
     Indication: Crohn^s disease
     Dosage: 3 VIALS EVERY 8 WEEKS,
     Route: 041
     Dates: start: 2011
  2. REMICADE [Suspect]
     Active Substance: INFLIXIMAB
     Indication: Crohn^s disease
     Route: 041
     Dates: start: 20150928
  3. OMEGA-3 FATTY ACIDS [Concomitant]
     Active Substance: OMEGA-3 FATTY ACIDS
     Route: 065
  4. METICORTEN [Concomitant]
     Active Substance: PREDNISONE
     Route: 065
  5. METICORTEN [Concomitant]
     Active Substance: PREDNISONE
     Route: 065
  6. VITAMINS [Concomitant]
     Active Substance: VITAMINS
     Route: 065
  7. FOSFOMYCIN TROMETHAMINE [Concomitant]
     Active Substance: FOSFOMYCIN TROMETHAMINE
     Route: 065

REACTIONS (7)
  - Crohn^s disease [Recovered/Resolved]
  - Intestinal stenosis [Unknown]
  - Amniotic fluid volume decreased [Unknown]
  - Caesarean section [Unknown]
  - Exposure during pregnancy [Recovered/Resolved]
  - Hypertension [Not Recovered/Not Resolved]
  - Bladder pain [Unknown]

NARRATIVE: CASE EVENT DATE: 20190101
